FAERS Safety Report 14707633 (Version 1)
Quarter: 2018Q2

REPORT INFORMATION
  Report Type: Spontaneous
  Country: US (occurrence: US)
  Receive Date: 20180403
  Receipt Date: 20180403
  Transmission Date: 20180711
  Serious: Yes (Other)
  Sender: FDA-Public Use
  Company Number: US-SHILPA MEDICARE LIMITED-SML-US-2018-00011

PATIENT
  Age: 78 Year
  Sex: Male

DRUGS (1)
  1. CAPECITABINE, UNKNOWN [Suspect]
     Active Substance: CAPECITABINE
     Indication: OESOPHAGEAL ADENOCARCINOMA
     Route: 065

REACTIONS (4)
  - Anterior spinal artery syndrome [Not Recovered/Not Resolved]
  - Immunosuppression [Not Recovered/Not Resolved]
  - Endocarditis [Recovered/Resolved]
  - Septic embolus [Not Recovered/Not Resolved]
